FAERS Safety Report 13284743 (Version 1)
Quarter: 2017Q1

REPORT INFORMATION
  Report Type: Spontaneous
  Country: US (occurrence: US)
  Receive Date: 20170228
  Receipt Date: 20170228
  Transmission Date: 20170428
  Serious: Yes (Other)
  Sender: FDA-Public Use
  Company Number: None

PATIENT
  Age: 61 Year
  Sex: Female

DRUGS (6)
  1. OXYBUTYNIN [Concomitant]
     Active Substance: OXYBUTYNIN
  2. NICODERM CQ [Concomitant]
     Active Substance: NICOTINE
  3. TIZANIDINE. [Concomitant]
     Active Substance: TIZANIDINE
  4. IBUPROFEN. [Concomitant]
     Active Substance: IBUPROFEN
  5. SIMVASTATIN. [Concomitant]
     Active Substance: SIMVASTATIN
  6. AMPYRA [Suspect]
     Active Substance: DALFAMPRIDINE
     Indication: MULTIPLE SCLEROSIS
     Route: 048
     Dates: start: 201607

REACTIONS (2)
  - Escherichia infection [None]
  - Urinary tract infection [None]

NARRATIVE: CASE EVENT DATE: 20170213
